FAERS Safety Report 16743086 (Version 1)
Quarter: 2019Q3

REPORT INFORMATION
  Report Type: Spontaneous
  Country: US (occurrence: US)
  Receive Date: 20190827
  Receipt Date: 20190827
  Transmission Date: 20191005
  Serious: No
  Sender: FDA-Public Use
  Company Number: US-TEVA-2019-US-1098619

PATIENT
  Sex: Male

DRUGS (2)
  1. TESTOSTERONE. [Suspect]
     Active Substance: TESTOSTERONE
     Indication: PRODUCT USED FOR UNKNOWN INDICATION
     Dosage: FORM STRENGTH: 30/1.5 MG/ML; FORM OF ADMINISTRATION: TOPICAL SOLUTION CIII
     Route: 061
     Dates: start: 20190501, end: 20190726
  2. ATORVASTATIN [Concomitant]
     Active Substance: ATORVASTATIN
     Indication: BLOOD CHOLESTEROL INCREASED
     Dosage: 10 MILLIGRAM DAILY;

REACTIONS (3)
  - Nipple inflammation [Recovered/Resolved]
  - Nipple pain [Recovered/Resolved]
  - Nipple disorder [Recovered/Resolved]
